FAERS Safety Report 16041049 (Version 1)
Quarter: 2019Q1

REPORT INFORMATION
  Report Type: Spontaneous
  Country: US (occurrence: US)
  Receive Date: 20190306
  Receipt Date: 20190306
  Transmission Date: 20190418
  Serious: No
  Sender: FDA-Public Use
  Company Number: US-AKORN PHARMACEUTICALS-2018AKN01343

PATIENT
  Age: 14 Year
  Sex: Female

DRUGS (2)
  1. ISOTRETINOIN (AMNEAL) [Suspect]
     Active Substance: ISOTRETINOIN
     Dosage: 30 MG, 1X/DAY ^IN THE DAYTIME^
  2. MYORISAN [Suspect]
     Active Substance: ISOTRETINOIN
     Dosage: 40 MG, 1X/DAY ^AT NIGHTIME^

REACTIONS (1)
  - Lacrimal disorder [Unknown]
